FAERS Safety Report 23916835 (Version 3)
Quarter: 2024Q2

REPORT INFORMATION
  Report Type: Spontaneous
  Country: US (occurrence: US)
  Receive Date: 20240529
  Receipt Date: 20240610
  Transmission Date: 20240716
  Serious: No
  Sender: FDA-Public Use
  Company Number: US-PURDUE PHARMA-USA-2024-0309869

PATIENT
  Age: 49 Year
  Sex: Female
  Weight: 63.5 kg

DRUGS (4)
  1. BUTRANS [Suspect]
     Active Substance: BUPRENORPHINE
     Indication: Fibromyalgia
     Dosage: 20 MCG/HR
     Route: 062
     Dates: start: 202303
  2. BUTRANS [Suspect]
     Active Substance: BUPRENORPHINE
     Indication: Spinal operation
  3. BUTRANS [Suspect]
     Active Substance: BUPRENORPHINE
     Indication: Pain management
  4. FLONASE [Concomitant]
     Active Substance: FLUTICASONE PROPIONATE
     Indication: Hypersensitivity
     Dosage: UNK
     Route: 065

REACTIONS (2)
  - Wrong technique in product usage process [Unknown]
  - Product adhesion issue [Unknown]

NARRATIVE: CASE EVENT DATE: 20240318
